FAERS Safety Report 23270618 (Version 1)
Quarter: 2023Q4

REPORT INFORMATION
  Report Type: Spontaneous
  Country: FR (occurrence: FR)
  Receive Date: 20231207
  Receipt Date: 20231207
  Transmission Date: 20240110
  Serious: Yes (Other)
  Sender: FDA-Public Use
  Company Number: FR-AFSSAPS-AVMP2023000403

PATIENT
  Age: 57 Year
  Sex: Female

DRUGS (3)
  1. ALPRAZOLAM [Suspect]
     Active Substance: ALPRAZOLAM
     Indication: Product used for unknown indication
     Dosage: 0,5 MG 2X/J
     Route: 048
     Dates: start: 2023
  2. AMITRIPTYLINE HYDROCHLORIDE [Suspect]
     Active Substance: AMITRIPTYLINE HYDROCHLORIDE
     Indication: Product used for unknown indication
     Dosage: 0-40-60 AU LIEU DE 0-20-40
     Route: 048
     Dates: start: 202011
  3. ACETAMINOPHEN\CAFFEINE\OPIUM [Suspect]
     Active Substance: ACETAMINOPHEN\CAFFEINE\OPIUM
     Indication: Product used for unknown indication
     Dosage: 2-3 COMPRIM?S EN COCKTAIL, POSOLOGIE QUOTIDIENNE : 2 MATIN 2 MIDI 2 SOIR
     Route: 048
     Dates: start: 2023

REACTIONS (2)
  - Drug use disorder [Recovering/Resolving]
  - Drug dependence [Recovering/Resolving]

NARRATIVE: CASE EVENT DATE: 20230101
